FAERS Safety Report 14573553 (Version 1)
Quarter: 2018Q1

REPORT INFORMATION
  Report Type: Report from Study
  Country: ES (occurrence: ES)
  Receive Date: 20180226
  Receipt Date: 20180226
  Transmission Date: 20180509
  Serious: Yes (Life-Threatening, Hospitalization)
  Sender: FDA-Public Use
  Company Number: ES-PFIZER INC-2018077884

PATIENT
  Age: 30 Year
  Sex: Female

DRUGS (6)
  1. TOPAMAX [Interacting]
     Active Substance: TOPIRAMATE
     Dosage: 6 BLISTER
     Route: 048
     Dates: start: 20170507, end: 20170507
  2. BRINTELLIX [Concomitant]
     Active Substance: VORTIOXETINE HYDROBROMIDE
     Dosage: 10 MG, 1X/DAY (1-0-0)
     Route: 048
     Dates: start: 20160312, end: 20170507
  3. LYRICA [Suspect]
     Active Substance: PREGABALIN
     Dosage: 5 BLISTER
     Route: 048
     Dates: start: 20170507, end: 20170507
  4. TRANXILIUM [Interacting]
     Active Substance: CLORAZEPATE DIPOTASSIUM
     Dosage: 2 BLISTER
     Route: 048
     Dates: start: 20170507, end: 20170507
  5. OMEPRAZOL [Interacting]
     Active Substance: OMEPRAZOLE
     Dosage: 20 CPS
     Route: 048
     Dates: start: 20170507, end: 20170507
  6. QUETIAPIN [Concomitant]
     Active Substance: QUETIAPINE
     Dosage: 0-0-1
     Route: 048
     Dates: start: 20170507, end: 20170507

REACTIONS (7)
  - Pancreatitis [Recovered/Resolved]
  - Suicide attempt [Unknown]
  - Drug interaction [Unknown]
  - Somnolence [Recovered/Resolved]
  - Metabolic acidosis [Recovered/Resolved]
  - Intentional overdose [Unknown]
  - Respiratory failure [Recovered/Resolved]

NARRATIVE: CASE EVENT DATE: 20170507
